FAERS Safety Report 11802540 (Version 1)
Quarter: 2015Q4

REPORT INFORMATION
  Report Type: Spontaneous
  Country: NL (occurrence: NL)
  Receive Date: 20151204
  Receipt Date: 20151204
  Transmission Date: 20160305
  Serious: Yes (Hospitalization)
  Sender: FDA-Public Use
  Company Number: NL-TEVA-613266ISR

PATIENT
  Age: 73 Year
  Sex: Male
  Weight: 60 kg

DRUGS (8)
  1. MACROGOL/ZOUTEN PDR V DRANK (MOVIC/MOLAX/LAXT/GEN) [Concomitant]
     Dosage: 2 DOSAGE FORMS DAILY;
     Route: 048
     Dates: start: 20140123
  2. ONDANSETRON INJVLST 2MG/ML [Concomitant]
     Dosage: 8 MILLIGRAM DAILY;
     Route: 042
     Dates: start: 20151119
  3. BEVACIZUMAB INFOPL CONC 25MG/ML [Concomitant]
     Route: 042
     Dates: start: 20151119
  4. OMEPRAZOL CAPSULE MSR 40MG [Concomitant]
     Active Substance: OMEPRAZOLE
     Dosage: 40 MILLIGRAM DAILY;
     Route: 048
     Dates: start: 20140123
  5. CAPECITABINE TABLET FO 150MG [Concomitant]
     Active Substance: CAPECITABINE
     Dosage: 300 MILLIGRAM DAILY;
     Route: 042
     Dates: start: 20151119
  6. OXALIPLATINE INFUUS [Suspect]
     Active Substance: OXALIPLATIN
     Indication: COLON CANCER
     Route: 042
     Dates: start: 20151119, end: 20151119
  7. CAPECITABINE TABLET FO 500MG [Concomitant]
     Active Substance: CAPECITABINE
     Dosage: 3000 MILLIGRAM DAILY;
     Route: 048
     Dates: start: 20151119
  8. DEXAMETHASON INJVLST 20MG/ML (BASE) [Concomitant]
     Dosage: 10 MILLIGRAM DAILY;
     Route: 042
     Dates: start: 20151119

REACTIONS (3)
  - Eyelid ptosis [Recovered/Resolved]
  - Dysaesthesia pharynx [Recovered/Resolved]
  - Muscle contractions involuntary [Recovered/Resolved]

NARRATIVE: CASE EVENT DATE: 20151119
